FAERS Safety Report 5962538-5 (Version None)
Quarter: 2008Q4

REPORT INFORMATION
  Report Type: 
  Country: None (occurrence: None)
  Receive Date: 20081121
  Receipt Date: 20081111
  Transmission Date: 20090506
  Serious: Yes (Other)
  Sender: FDA-Public Use
  Company Number: US-PFIZER INC-2008095552

PATIENT
  Sex: Female
  Weight: 48.181 kg

DRUGS (3)
  1. CELEBREX [Suspect]
     Indication: RHEUMATOID ARTHRITIS
  2. THYROID HORMONES [Concomitant]
  3. LEFLUNOMIDE [Concomitant]

REACTIONS (4)
  - ABDOMINAL DISCOMFORT [None]
  - DECREASED APPETITE [None]
  - WEIGHT DECREASED [None]
  - WHITE BLOOD CELL COUNT INCREASED [None]
